FAERS Safety Report 10585693 (Version 7)
Quarter: 2021Q1

REPORT INFORMATION
  Report Type: Spontaneous
  Country: BR (occurrence: BR)
  Receive Date: 20141114
  Receipt Date: 20210212
  Transmission Date: 20210419
  Serious: Yes (Other)
  Sender: FDA-Public Use
  Company Number: BR-PFIZER INC-2014312768

PATIENT
  Age: 33 Year
  Sex: Female
  Weight: 40 kg

DRUGS (6)
  1. DEPO?PROVERA [Suspect]
     Active Substance: MEDROXYPROGESTERONE ACETATE
     Indication: MENSTRUAL CYCLE MANAGEMENT
     Dosage: 150 MG, UNK
     Dates: start: 2013
  2. PHENYTOIN. [Suspect]
     Active Substance: PHENYTOIN
     Indication: SEIZURE
     Dosage: UNK
     Dates: start: 1982
  3. PHENOBARBITAL. [Concomitant]
     Active Substance: PHENOBARBITAL
     Indication: SEIZURE
     Dosage: UNK
     Dates: start: 1982
  4. DEPO?PROVERA [Suspect]
     Active Substance: MEDROXYPROGESTERONE ACETATE
     Dosage: 150 MG, EVERY 75 DAYS
  5. DEPO?PROVERA [Suspect]
     Active Substance: MEDROXYPROGESTERONE ACETATE
     Dosage: 150 MG, EVERY 80/83 DAYS
     Dates: start: 2013
  6. DEPO?PROVERA [Suspect]
     Active Substance: MEDROXYPROGESTERONE ACETATE
     Dosage: EVERY 40 DAYS

REACTIONS (14)
  - Amenorrhoea [Unknown]
  - Weight increased [Not Recovered/Not Resolved]
  - Rabies [Unknown]
  - Therapeutic response unexpected [Unknown]
  - Pre-existing condition improved [Unknown]
  - Salivary hypersecretion [Recovering/Resolving]
  - Energy increased [Unknown]
  - Fatigue [Unknown]
  - Intentional product misuse [Unknown]
  - Vitreous floaters [Not Recovered/Not Resolved]
  - Off label use [Unknown]
  - Drug dependence [Unknown]
  - Amnesia [Not Recovered/Not Resolved]
  - Cerebrovascular accident [Unknown]

NARRATIVE: CASE EVENT DATE: 20140902
